FAERS Safety Report 4289666-7 (Version None)
Quarter: 2004Q1

REPORT INFORMATION
  Report Type: 
  Country: None (occurrence: None)
  Receive Date: 20040206
  Receipt Date: 20040206
  Transmission Date: 20041129
  Serious: No
  Sender: FDA-Public Use
  Company Number: None

PATIENT
  Age: 79 Year
  Sex: Female
  Weight: 58 kg

DRUGS (4)
  1. NATRECOR [Suspect]
     Indication: CARDIAC FAILURE CONGESTIVE
     Dosage: 2.5 MCG/KG BOLUS INTRAVENOUS, 0.01 MCG/KG MIN INTRAVENOUS
     Route: 042
     Dates: start: 20031109, end: 20031109
  2. LOSARTAN [Concomitant]
  3. CLOPIDOGREL BISULFATE [Concomitant]
  4. FUROSEMIDE [Concomitant]

REACTIONS (1)
  - HYPOTENSION [None]
